FAERS Safety Report 4491813-9 (Version None)
Quarter: 2004Q4

REPORT INFORMATION
  Report Type: 
  Country: None (occurrence: None)
  Receive Date: 20041101
  Receipt Date: 20041005
  Transmission Date: 20050328
  Serious: Yes (Death, Life-Threatening)
  Sender: FDA-Public Use
  Company Number: F01200403096

PATIENT
  Age: 82 Year
  Sex: Female
  Weight: 69.1 kg

DRUGS (5)
  1. OXALIPLATIN [Suspect]
     Indication: COLORECTAL CANCER
     Dosage: 130 MG/M2 Q3W - INTRAVENOUS NOS
     Route: 042
     Dates: start: 20040914, end: 20040914
  2. CAPECITABINE [Suspect]
     Dosage: 850 MG/M2 TWICE DAILY FROM D1 TO D15, Q3W - ORAL
     Route: 048
     Dates: start: 20040914, end: 20040914
  3. AVASTATIN - BEVACIZUMAB [Suspect]
     Dosage: 7.5 MG/KG OVER 30-90 MINUTES IV INFUSION ON DAY 1, Q3W - INTRAVENOUS
     Route: 042
     Dates: start: 20040914, end: 20040914
  4. GEMFIBROZIL [Concomitant]
  5. PANTOPRAZOLE SODIUM [Concomitant]

REACTIONS (20)
  - ACTIVATED PARTIAL THROMBOPLASTIN TIME SHORTENED [None]
  - ARTERIOSCLEROSIS [None]
  - BLOOD CREATINE PHOSPHOKINASE INCREASED [None]
  - BLOOD CREATINE PHOSPHOKINASE MB INCREASED [None]
  - BLOOD PRESSURE SYSTOLIC INCREASED [None]
  - CATATONIA [None]
  - CEREBROVASCULAR ACCIDENT [None]
  - CONTUSION [None]
  - DYSARTHRIA [None]
  - ELECTROCARDIOGRAM ST SEGMENT DEPRESSION [None]
  - EYE DISORDER [None]
  - EYE MOVEMENT DISORDER [None]
  - EYELID PTOSIS [None]
  - FALL [None]
  - HEMIANOPIA HOMONYMOUS [None]
  - HEMIPARESIS [None]
  - HYPOKALAEMIA [None]
  - HYPOTONIA [None]
  - TROPONIN I INCREASED [None]
  - VISUAL FIELD DEFECT [None]
